FAERS Safety Report 12958456 (Version 1)
Quarter: 2016Q4

REPORT INFORMATION
  Report Type: Spontaneous
  Country: US (occurrence: US)
  Receive Date: 20161121
  Receipt Date: 20161121
  Transmission Date: 20170207
  Serious: Yes (Other)
  Sender: FDA-Public Use
  Company Number: US-TEVA-643919USA

PATIENT
  Sex: Male

DRUGS (1)
  1. DIAZEPAM. [Suspect]
     Active Substance: DIAZEPAM
     Indication: SEIZURE
     Dates: start: 20160212, end: 201602

REACTIONS (5)
  - Migraine [Unknown]
  - Drug ineffective [Unknown]
  - Product substitution issue [Unknown]
  - Tremor [Unknown]
  - Seizure [Unknown]
